FAERS Safety Report 8212251-9 (Version None)
Quarter: 2012Q1

REPORT INFORMATION
  Report Type: 
  Country: None (occurrence: None)
  Receive Date: 20120315
  Receipt Date: 20120302
  Transmission Date: 20120608
  Serious: No
  Sender: FDA-Public Use
  Company Number: US-JNJFOC-20120302755

PATIENT
  Age: 26 Year

DRUGS (3)
  1. INVEGA [Suspect]
     Route: 048
     Dates: start: 20100901, end: 20110901
  2. INVEGA [Suspect]
     Indication: SCHIZOPHRENIA, PARANOID TYPE
     Route: 048
  3. COGENTIN [Suspect]
     Indication: SCHIZOPHRENIA, PARANOID TYPE
     Route: 048
     Dates: start: 20100901

REACTIONS (3)
  - MOVEMENT DISORDER [None]
  - RESTLESSNESS [None]
  - LABORATORY TEST ABNORMAL [None]
